FAERS Safety Report 11218262 (Version 3)
Quarter: 2015Q3

REPORT INFORMATION
  Report Type: Spontaneous
  Country: US (occurrence: US)
  Receive Date: 20150625
  Receipt Date: 20150811
  Transmission Date: 20151125
  Serious: Yes (Hospitalization, Other)
  Sender: FDA-Public Use
  Company Number: US-009507513-1506USA010098

PATIENT
  Age: 71 Year
  Sex: Female

DRUGS (1)
  1. FOSAMAX [Suspect]
     Active Substance: ALENDRONATE SODIUM
     Dosage: DOSE UNKNOWN, ONCE DAILY
     Route: 048

REACTIONS (9)
  - Disorientation [Unknown]
  - Seizure [Unknown]
  - Dizziness [Unknown]
  - Feeling hot [Unknown]
  - Inappropriate schedule of drug administration [Unknown]
  - Cerebrovascular accident [Recovered/Resolved]
  - Overdose [Unknown]
  - Fall [Unknown]
  - Adverse event [Unknown]

NARRATIVE: CASE EVENT DATE: 2000
